FAERS Safety Report 7664050-4 (Version None)
Quarter: 2011Q3

REPORT INFORMATION
  Report Type: 
  Country: None (occurrence: None)
  Receive Date: 20110805
  Receipt Date: 20100805
  Transmission Date: 20111222
  Serious: No
  Sender: FDA-Public Use
  Company Number: US-ABBOTT-10P-163-0661714-00

PATIENT
  Sex: Female
  Weight: 94.886 kg

DRUGS (6)
  1. NIASPAN [Suspect]
     Dosage: 500MG EVERY OTHER DAY AT BEDTIME
     Route: 048
  2. NIASPAN [Suspect]
     Indication: BLOOD TRIGLYCERIDES INCREASED
     Dosage: 500MG AT BEDTIME
     Route: 048
  3. NIASPAN [Suspect]
     Dosage: 500MG X 2 EVERY OTHER DAY AT BEDTIME
     Route: 048
  4. WELLBUTRIN [Concomitant]
     Indication: PRODUCT USED FOR UNKNOWN INDICATION
  5. ESTRADIOL [Concomitant]
     Indication: PRODUCT USED FOR UNKNOWN INDICATION
     Route: 048
  6. ASPIRIN [Concomitant]
     Indication: PRODUCT USED FOR UNKNOWN INDICATION
     Dosage: 325MG PRIOR TO DOSE OF NIASPAN
     Route: 048

REACTIONS (1)
  - PAIN [None]
